FAERS Safety Report 13009229 (Version 1)
Quarter: 2016Q4

REPORT INFORMATION
  Report Type: Spontaneous
  Country: FR (occurrence: FR)
  Receive Date: 20161208
  Receipt Date: 20161208
  Transmission Date: 20170207
  Serious: Yes (Congenital Anomaly)
  Sender: FDA-Public Use
  Company Number: FR-CONCORDIA PHARMACEUTICALS INC.-E2B_00007932

PATIENT

DRUGS (7)
  1. TEGRETOL LP [Suspect]
     Active Substance: CARBAMAZEPINE
     Indication: FOETAL EXPOSURE DURING PREGNANCY
     Route: 064
     Dates: start: 2007
  2. URBANYL [Suspect]
     Active Substance: CLOBAZAM
     Indication: FOETAL EXPOSURE DURING PREGNANCY
     Dosage: 10 MG ON DEMAND
     Route: 064
  3. ZONEGRAN [Suspect]
     Active Substance: ZONISAMIDE
     Route: 064
     Dates: start: 20140123
  4. ZONEGRAN [Suspect]
     Active Substance: ZONISAMIDE
     Route: 064
     Dates: start: 2014
  5. ZONEGRAN [Suspect]
     Active Substance: ZONISAMIDE
     Indication: FOETAL EXPOSURE DURING PREGNANCY
     Route: 064
     Dates: start: 20130925, end: 20140114
  6. TEGRETOL LP [Suspect]
     Active Substance: CARBAMAZEPINE
     Route: 064
  7. ZONEGRAN [Suspect]
     Active Substance: ZONISAMIDE
     Route: 064
     Dates: start: 20140115, end: 20140122

REACTIONS (3)
  - Foetal exposure during pregnancy [Not Recovered/Not Resolved]
  - Pulmonary valve stenosis congenital [Not Recovered/Not Resolved]
  - Renal hypoplasia [Not Recovered/Not Resolved]

NARRATIVE: CASE EVENT DATE: 20161012
